FAERS Safety Report 15675905 (Version 1)
Quarter: 2018Q4

REPORT INFORMATION
  Report Type: Spontaneous
  Country: AR (occurrence: AR)
  Receive Date: 20181130
  Receipt Date: 20181130
  Transmission Date: 20190205
  Serious: Yes (Death)
  Sender: FDA-Public Use
  Company Number: AR-PFIZER INC-2018490192

PATIENT
  Age: 23 Year
  Sex: Male

DRUGS (1)
  1. ECALTA [Suspect]
     Active Substance: ANIDULAFUNGIN
     Indication: SYSTEMIC CANDIDA
     Dosage: UNK

REACTIONS (1)
  - Death [Fatal]
